FAERS Safety Report 9438440 (Version 1)
Quarter: 2013Q3

REPORT INFORMATION
  Report Type: Spontaneous
  Country: US (occurrence: US)
  Receive Date: 20130802
  Receipt Date: 20130802
  Transmission Date: 20140515
  Serious: Yes (Death)
  Sender: FDA-Public Use
  Company Number: US-JNJFOC-20130717920

PATIENT
  Age: 26 Year
  Sex: Female

DRUGS (6)
  1. CLADRIBINE [Suspect]
     Indication: DIFFUSE LARGE B-CELL LYMPHOMA
     Dosage: FOR 5 DAYS, - 10 TO - 6 DAYS
     Route: 042
  2. THIOTEPA [Suspect]
     Indication: DIFFUSE LARGE B-CELL LYMPHOMA
     Dosage: FOR 3 DAYS, DAYS -5 TO -3
     Route: 065
  3. RABBIT ANTITHYMOCYTE GLOBULIN [Suspect]
     Indication: HAEMATOLOGICAL MALIGNANCY
     Route: 065
  4. GRANULOCYTE-COLONY STIMULATING FACTOR [Concomitant]
     Route: 065
  5. CYCLOSPORINE [Concomitant]
     Indication: IMMUNOSUPPRESSION
     Route: 042
  6. CYCLOSPORINE [Concomitant]
     Indication: IMMUNOSUPPRESSION
     Dosage: LOADING DOSE; DAY -1
     Route: 042

REACTIONS (7)
  - Haemorrhage intracranial [Fatal]
  - Pulmonary toxicity [Unknown]
  - Pulmonary alveolar haemorrhage [Unknown]
  - Neutropenia [Unknown]
  - Anaemia [Unknown]
  - Thrombocytopenia [Unknown]
  - Off label use [Unknown]
